FAERS Safety Report 8821707 (Version 1)
Quarter: 2012Q4

REPORT INFORMATION
  Report Type: 
  Country: US (occurrence: US)
  Receive Date: 20121002
  Receipt Date: 20121002
  Transmission Date: 20130627
  Serious: No
  Sender: FDA-Public Use
  Company Number: US-VERTEX PHARMACEUTICAL INC.-2012-020579

PATIENT
  Age: 60 Year
  Sex: Male
  Weight: 53 kg

DRUGS (4)
  1. VX-950 [Suspect]
     Indication: HEPATITIS C
     Dosage: 750 mg, tid
     Route: 048
     Dates: start: 20120824
  2. PEGASYS [Concomitant]
     Indication: HEPATITIS C
     Dosage: 80 ?g, UNK
     Route: 058
     Dates: start: 20120824
  3. RIBAPAK [Concomitant]
     Indication: HEPATITIS C
     Dosage: 400 mg, bid
     Dates: start: 20120824
  4. VISTARIL /00058402/ [Concomitant]
     Dosage: 25 mg, prn

REACTIONS (3)
  - Fatigue [Unknown]
  - Diarrhoea [Unknown]
  - Pruritus [Unknown]
